FAERS Safety Report 26022182 (Version 1)
Quarter: 2025Q4

REPORT INFORMATION
  Report Type: Spontaneous
  Country: US (occurrence: None)
  Receive Date: 20251110
  Receipt Date: 20251110
  Transmission Date: 20260118
  Serious: Yes (Death, Other)
  Sender: FDA-CTU
  Company Number: None

PATIENT
  Age: 61 Year
  Sex: Female
  Weight: 70.6 kg

DRUGS (7)
  1. CARVYKTI [Suspect]
     Active Substance: CILTACABTAGENE AUTOLEUCEL
     Indication: Plasma cell myeloma refractory
     Dosage: OTHER FREQUENCY : 1X10E8;?
     Route: 042
     Dates: start: 20241122, end: 20241122
  2. FLUDARABINE [Suspect]
     Active Substance: FLUDARABINE PHOSPHATE
  3. CYCLOPHOSPHAMIDE [Suspect]
     Active Substance: CYCLOPHOSPHAMIDE
  4. AMANTADINE [Suspect]
     Active Substance: AMANTADINE
  5. LEXAPRO [Suspect]
     Active Substance: ESCITALOPRAM OXALATE
  6. SINEMET [Suspect]
     Active Substance: CARBIDOPA\LEVODOPA
  7. HUMAN IMMUNOGLOBULIN G [Suspect]
     Active Substance: HUMAN IMMUNOGLOBULIN G

REACTIONS (15)
  - Cytokine release syndrome [None]
  - Neurotoxicity [None]
  - Tremor [None]
  - Flat affect [None]
  - Lethargy [None]
  - Loss of personal independence in daily activities [None]
  - Muscular weakness [None]
  - Refusal of treatment by patient [None]
  - Peripheral swelling [None]
  - Weight decreased [None]
  - Affective disorder [None]
  - Fall [None]
  - Muscular weakness [None]
  - Gait disturbance [None]
  - Choking [None]

NARRATIVE: CASE EVENT DATE: 20250731
